FAERS Safety Report 18157131 (Version 3)
Quarter: 2024Q1

REPORT INFORMATION
  Report Type: Spontaneous
  Country: US (occurrence: US)
  Receive Date: 20200817
  Receipt Date: 20240312
  Transmission Date: 20240410
  Serious: Yes (Life-Threatening, Hospitalization, Other)
  Sender: FDA-Public Use
  Company Number: US-MLMSERVICE-20200805-2417833-1

PATIENT
  Age: 17 Year
  Sex: Female
  Weight: 49.8 kg

DRUGS (6)
  1. METHOTREXATE SODIUM [Suspect]
     Active Substance: METHOTREXATE SODIUM
     Indication: Pinealoblastoma
     Dosage: 8000 MG/M2, CYCLIC, HIGH DOSE
  2. METHOTREXATE SODIUM [Suspect]
     Active Substance: METHOTREXATE SODIUM
     Dosage: 5000 MG/M2, CYCLIC
  3. CYCLOPHOSPHAMIDE [Concomitant]
     Active Substance: CYCLOPHOSPHAMIDE
     Indication: Pinealoblastoma
     Dosage: UNK, CYCLIC, CYCLE 3
  4. CISPLATIN [Concomitant]
     Active Substance: CISPLATIN
     Indication: Pinealoblastoma
     Dosage: UNK, CYCLIC, CYCLE 3
  5. LEUCOVORIN [Concomitant]
     Active Substance: LEUCOVORIN\LEUCOVORIN CALCIUM
     Indication: Pinealoblastoma
     Dosage: 15 MG/M2, 4X/DAY
     Route: 042
  6. ETOPOSIDE [Concomitant]
     Active Substance: ETOPOSIDE
     Indication: Pinealoblastoma
     Dosage: UNK, CYCLIC, CYCLE 3

REACTIONS (2)
  - Toxic encephalopathy [Recovered/Resolved]
  - Neurotoxicity [Recovered/Resolved]
